FAERS Safety Report 8619113 (Version 3)
Quarter: 2012Q4

REPORT INFORMATION
  Report Type: Report from Study
  Country: JP (occurrence: JP)
  Receive Date: 20120618
  Receipt Date: 20120904
  Transmission Date: 20130627
  Serious: Yes (Other)
  Sender: FDA-Public Use
  Company Number: JP-UCBSA-059290

PATIENT
  Age: 17 Year
  Sex: Female

DRUGS (22)
  1. E-KEPPRA [Suspect]
     Indication: MYOCLONIC EPILEPSY
     Route: 048
     Dates: start: 20111228, end: 20120113
  2. E-KEPPRA [Suspect]
     Indication: GRAND MAL CONVULSION
     Route: 048
     Dates: start: 20111228, end: 20120113
  3. E-KEPPRA [Suspect]
     Indication: MYOCLONIC EPILEPSY
     Route: 048
     Dates: start: 20111207, end: 20111227
  4. E-KEPPRA [Suspect]
     Indication: GRAND MAL CONVULSION
     Route: 048
     Dates: start: 20111207, end: 20111227
  5. SODIUM VALPROATE [Concomitant]
     Indication: GRAND MAL CONVULSION
     Dosage: DAILY DOSE: 1400 MG
     Route: 048
     Dates: start: 20110511
  6. SODIUM VALPROATE [Concomitant]
     Indication: MYOCLONIC EPILEPSY
     Dosage: DAILY DOSE: 1400 MG
     Route: 048
     Dates: start: 20110511
  7. SODIUM VALPROATE [Concomitant]
     Indication: GRAND MAL CONVULSION
     Dosage: DAILY DOSE: 1300 MG
     Route: 048
     Dates: start: 20110506, end: 20110510
  8. SODIUM VALPROATE [Concomitant]
     Indication: MYOCLONIC EPILEPSY
     Dosage: DAILY DOSE: 1300 MG
     Route: 048
     Dates: start: 20110506, end: 20110510
  9. SODIUM VALPROATE [Concomitant]
     Indication: GRAND MAL CONVULSION
     Dosage: DAILY DOSE: 1200 MG
     Route: 048
     Dates: start: 20110427, end: 20110505
  10. SODIUM VALPROATE [Concomitant]
     Indication: MYOCLONIC EPILEPSY
     Dosage: DAILY DOSE: 1200 MG
     Route: 048
     Dates: start: 20110427, end: 20110505
  11. SODIUM VALPROATE [Concomitant]
     Indication: GRAND MAL CONVULSION
     Dosage: DAILY DOSE: 1000 MG
     Route: 048
     Dates: start: 20110406, end: 20110426
  12. SODIUM VALPROATE [Concomitant]
     Indication: MYOCLONIC EPILEPSY
     Dosage: DAILY DOSE: 1000 MG
     Route: 048
     Dates: start: 20110406, end: 20110426
  13. SODIUM VALPROATE [Concomitant]
     Indication: GRAND MAL CONVULSION
     Route: 048
     Dates: start: 200706, end: 20110405
  14. SODIUM VALPROATE [Concomitant]
     Indication: MYOCLONIC EPILEPSY
     Route: 048
     Dates: start: 200706, end: 20110405
  15. CLOBAZAM [Concomitant]
     Indication: MYOCLONIC EPILEPSY
     Dosage: DAILY DOSE: 5 MG
     Route: 048
     Dates: start: 20120114, end: 20120120
  16. CLOBAZAM [Concomitant]
     Indication: GRAND MAL CONVULSION
     Dosage: DAILY DOSE: 5 MG
     Route: 048
     Dates: start: 20120114, end: 20120120
  17. CLOBAZAM [Concomitant]
     Indication: MYOCLONIC EPILEPSY
     Dosage: DAILY DOSE:10 MG
     Route: 048
     Dates: start: 20120121, end: 20120217
  18. CLOBAZAM [Concomitant]
     Indication: GRAND MAL CONVULSION
     Dosage: DAILY DOSE:10 MG
     Route: 048
     Dates: start: 20120121, end: 20120217
  19. CLOBAZAM [Concomitant]
     Indication: MYOCLONIC EPILEPSY
     Dosage: DAILY DOSE:15 MG
     Route: 048
     Dates: start: 20120218, end: 20120302
  20. CLOBAZAM [Concomitant]
     Indication: GRAND MAL CONVULSION
     Dosage: DAILY DOSE:15 MG
     Route: 048
     Dates: start: 20120218, end: 20120302
  21. CLOBAZAM [Concomitant]
     Indication: MYOCLONIC EPILEPSY
     Dosage: DAILY DOSE:20 MG
     Route: 048
     Dates: start: 20120303
  22. CLOBAZAM [Concomitant]
     Indication: GRAND MAL CONVULSION
     Dosage: DAILY DOSE:20 MG
     Route: 048
     Dates: start: 20120303

REACTIONS (1)
  - Epilepsy [Not Recovered/Not Resolved]
